FAERS Safety Report 8908018 (Version 2)
Quarter: 2013Q2

REPORT INFORMATION
  Report Type: Spontaneous
  Country: CL (occurrence: CL)
  Receive Date: 20121113
  Receipt Date: 20130522
  Transmission Date: 20140414
  Serious: Yes (Life-Threatening, Hospitalization, Disabling, Other)
  Sender: FDA-Public Use
  Company Number: CL-009507513-1210CHL014497

PATIENT
  Age: 40 Year
  Sex: Female

DRUGS (24)
  1. IMPLANON [Suspect]
     Indication: CONTRACEPTION
     Dosage: 68MG TRIENNIAL 25-70 MCG DAILY
     Route: 059
     Dates: start: 20110922
  2. KETOROLAC TROMETHAMINE [Concomitant]
     Indication: PHARYNGITIS
     Dosage: 30 MG, ONCE
     Route: 042
     Dates: start: 20120512
  3. KETOROLAC TROMETHAMINE [Concomitant]
     Indication: LARYNGITIS
  4. BETAMETHASONE [Concomitant]
     Indication: PHARYNGITIS
     Dosage: 4 MG, ONCE
     Route: 042
     Dates: start: 20120512
  5. BETAMETHASONE [Concomitant]
     Indication: LARYNGITIS
  6. SODIUM PHOSPHATE, DIBASIC [Concomitant]
     Indication: PHARYNGITIS
     Dosage: UNK
     Dates: start: 20120512
  7. SODIUM PHOSPHATE, DIBASIC [Concomitant]
     Indication: LARYNGITIS
  8. KETOPROFEN [Concomitant]
     Indication: PHARYNGITIS
     Dosage: 50 MG, Q8H
     Dates: start: 20120512, end: 20120514
  9. KETOPROFEN [Concomitant]
     Indication: LARYNGITIS
  10. PREDNISONE [Concomitant]
     Indication: PHARYNGITIS
     Dosage: 20 MG, Q12H
     Dates: start: 20120512, end: 20120515
  11. PREDNISONE [Concomitant]
     Indication: LARYNGITIS
  12. PREDNISONE [Concomitant]
     Indication: DERMATITIS ALLERGIC
     Dosage: 20 MG, Q12H
     Dates: start: 201206
  13. HYDROXYZINE [Concomitant]
     Indication: DERMATITIS ALLERGIC
     Dosage: UNK
     Dates: start: 201206
  14. CAPTOPRIL [Concomitant]
     Indication: HYPERTENSIVE CRISIS
     Dosage: 25 MG, ONCE
     Dates: start: 20120618, end: 20120618
  15. KETOROLAC TROMETHAMINE [Concomitant]
     Indication: NECK PAIN
     Dosage: 60 MG, ONCE
     Route: 042
     Dates: start: 20120618, end: 20120618
  16. ISOSORBIDE [Concomitant]
     Indication: HYPERTENSIVE CRISIS
     Dosage: UNK
     Route: 048
     Dates: start: 20120618, end: 20120618
  17. FUROSEMIDE [Concomitant]
     Indication: HYPERTENSIVE CRISIS
     Dosage: UNK
     Route: 042
     Dates: start: 20120618, end: 20120618
  18. PREDNISONE [Concomitant]
     Indication: SYSTEMIC LUPUS ERYTHEMATOSUS
     Dosage: 30 MG, QD
     Route: 048
     Dates: start: 20121028
  19. CALCIUM CARBONATE (+) CHOLECALCIFEROL [Concomitant]
     Dosage: 800MG/3.125 MCG, QD
     Route: 048
     Dates: start: 20121028
  20. HYDROXYCHLOROQUINE SULFATE [Concomitant]
     Dosage: 200 MG, QD
     Route: 048
     Dates: start: 20121028
  21. OMEPRAZOLE [Concomitant]
     Dosage: 20 MG, QD
     Route: 048
     Dates: start: 20121028
  22. ACETAMINOPHEN [Concomitant]
     Dosage: 500 MG, Q8H
     Route: 048
     Dates: start: 20121028
  23. ATENOLOL [Concomitant]
     Indication: HYPERTENSION
     Dosage: 50 MG, QD
     Route: 048
     Dates: start: 20121028
  24. LOSARTAN POTASSIUM [Concomitant]
     Indication: HYPERTENSION
     Dosage: 50 MG, Q12H
     Route: 048
     Dates: start: 20121028

REACTIONS (9)
  - Systemic lupus erythematosus [Not Recovered/Not Resolved]
  - Hypertensive crisis [Not Recovered/Not Resolved]
  - Menstruation irregular [Unknown]
  - Neck pain [Unknown]
  - Pharyngitis [Recovered/Resolved]
  - Laryngitis [Recovered/Resolved]
  - Hypertension [Not Recovered/Not Resolved]
  - Dermatitis allergic [Unknown]
  - Amenorrhoea [Recovered/Resolved]
